FAERS Safety Report 24328957 (Version 1)
Quarter: 2024Q3

REPORT INFORMATION
  Report Type: Spontaneous
  Country: MY (occurrence: MY)
  Receive Date: 20240917
  Receipt Date: 20240917
  Transmission Date: 20241017
  Serious: Yes (Death, Life-Threatening, Hospitalization, Other)
  Sender: ASTELLAS
  Company Number: MY-SANDOZ-SDZ2024MY076813

PATIENT

DRUGS (1)
  1. MICAFUNGIN [Suspect]
     Active Substance: MICAFUNGIN SODIUM
     Indication: Antifungal treatment
     Route: 050
     Dates: start: 20231213

REACTIONS (4)
  - Fungal infection [Fatal]
  - Condition aggravated [Fatal]
  - Immunodeficiency [Fatal]
  - Drug ineffective [Fatal]
